FAERS Safety Report 21025757 (Version 1)
Quarter: 2022Q2

REPORT INFORMATION
  Report Type: Other
  Country: GB (occurrence: GB)
  Receive Date: 20220630
  Receipt Date: 20220630
  Transmission Date: 20220721
  Serious: Yes (Other)
  Sender: FDA-Public Use
  Company Number: GB-CELLTRION INC.-2022GB010389

PATIENT

DRUGS (2)
  1. INFLIXIMAB [Suspect]
     Active Substance: INFLIXIMAB
     Indication: Colitis
     Dosage: DOSE FORM: 120; ADDITIONAL INFO: ROUTE:
     Dates: start: 20210921, end: 20211102
  2. MESALAMINE [Concomitant]
     Active Substance: MESALAMINE
     Indication: Colitis
     Dosage: ADDITIONAL INFO: ROUTE:
     Dates: start: 20210917

REACTIONS (2)
  - Haematochezia [Recovered/Resolved]
  - Exposure via breast milk [Unknown]
